FAERS Safety Report 6467167-5 (Version None)
Quarter: 2009Q4

REPORT INFORMATION
  Report Type: 
  Country: None (occurrence: None)
  Receive Date: 20091127
  Receipt Date: 20091118
  Transmission Date: 20100525
  Serious: Yes (Hospitalization)
  Sender: FDA-Public Use
  Company Number: 2009SP037360

PATIENT
  Age: 70 Year
  Sex: Male

DRUGS (5)
  1. BETAMATHASONE DIPROPIONATE [Suspect]
     Indication: ECZEMA
     Dosage: TOP
     Route: 061
     Dates: end: 20090717
  2. SIFROL [Concomitant]
  3. TRAVATAN [Concomitant]
  4. IBUPROFEN [Concomitant]
  5. PARACETAMOL [Concomitant]

REACTIONS (8)
  - CONDITION AGGRAVATED [None]
  - DERMO-HYPODERMITIS [None]
  - ECZEMA [None]
  - ERYSIPELOID [None]
  - LYMPHADENOPATHY [None]
  - LYMPHANGITIS [None]
  - SCRATCH [None]
  - SUPERINFECTION [None]
